FAERS Safety Report 21328829 (Version 3)
Quarter: 2024Q2

REPORT INFORMATION
  Report Type: Spontaneous
  Country: CA (occurrence: CA)
  Receive Date: 20220913
  Receipt Date: 20240410
  Transmission Date: 20240716
  Serious: Yes (Death)
  Sender: FDA-Public Use
  Company Number: CA-AMGEN-CANSP2022155077

PATIENT

DRUGS (7)
  1. XGEVA [Suspect]
     Active Substance: DENOSUMAB
     Indication: Hormone-refractory prostate cancer
     Dosage: UNK
     Route: 065
  2. XGEVA [Suspect]
     Active Substance: DENOSUMAB
     Indication: Prophylaxis
  3. ABIRATERONE [Concomitant]
     Active Substance: ABIRATERONE
  4. DOCETAXEL [Concomitant]
     Active Substance: DOCETAXEL\DOCETAXEL ANHYDROUS
  5. ENZALUTAMIDE [Concomitant]
     Active Substance: ENZALUTAMIDE
  6. RADIUM [Concomitant]
     Active Substance: RADIUM
  7. CABAZITAXEL [Concomitant]
     Active Substance: CABAZITAXEL

REACTIONS (1)
  - Prostate cancer [Fatal]
